FAERS Safety Report 23382836 (Version 3)
Quarter: 2024Q1

REPORT INFORMATION
  Report Type: Spontaneous
  Country: US (occurrence: US)
  Receive Date: 20240109
  Receipt Date: 20240116
  Transmission Date: 20240410
  Serious: No
  Sender: FDA-Public Use
  Company Number: US-OPELLA-2024OHG000404

PATIENT
  Sex: Female

DRUGS (2)
  1. DULCOLAX (BISACODYL) [Suspect]
     Active Substance: BISACODYL
     Indication: Product used for unknown indication
     Route: 054
  2. DULCOLAX (BISACODYL) [Suspect]
     Active Substance: BISACODYL

REACTIONS (2)
  - Therapeutic response decreased [Unknown]
  - No adverse event [Unknown]
